FAERS Safety Report 5460903-6 (Version None)
Quarter: 2007Q3

REPORT INFORMATION
  Report Type: 
  Country: None (occurrence: None)
  Receive Date: 20070827
  Receipt Date: 20061127
  Transmission Date: 20080115
  Serious: Yes (Other)
  Sender: FDA-Public Use
  Company Number: 2006120521

PATIENT
  Age: 54 Year
  Sex: Female
  Weight: 67.1324 kg

DRUGS (3)
  1. VFEND [Suspect]
     Dates: start: 20060922
  2. CIPROFLOXACIN [Concomitant]
  3. CLINDAMYCIN (CLINDAMYCIN) [Concomitant]

REACTIONS (2)
  - VISION BLURRED [None]
  - VISUAL DISTURBANCE [None]
